FAERS Safety Report 4588978-7 (Version None)
Quarter: 2005Q1

REPORT INFORMATION
  Report Type: 
  Country: None (occurrence: None)
  Receive Date: 20050216
  Receipt Date: 20050127
  Transmission Date: 20050727
  Serious: Yes (Hospitalization)
  Sender: FDA-Public Use
  Company Number: US_0502111615

PATIENT
  Age: 70 Year
  Sex: Male
  Weight: 70 kg

DRUGS (6)
  1. DOBUTAMINE HCL [Suspect]
     Indication: STRESS ECHOCARDIOGRAM
     Dates: start: 20020107, end: 20020107
  2. TRISENOX [Concomitant]
  3. ALDOMET [Concomitant]
  4. ASPIRIN [Concomitant]
  5. POTASSIUM CHLORIDE [Concomitant]
  6. MAGNESIUM (MAGNESIUM ASPARTATE) [Concomitant]

REACTIONS (4)
  - ATRIAL FLUTTER [None]
  - BLOOD PRESSURE SYSTOLIC INCREASED [None]
  - CARDIAC MURMUR [None]
  - VENOUS PRESSURE JUGULAR INCREASED [None]
